FAERS Safety Report 6736151-6 (Version None)
Quarter: 2010Q2

REPORT INFORMATION
  Report Type: 
  Country: None (occurrence: None)
  Receive Date: 20100521
  Receipt Date: 20100513
  Transmission Date: 20101027
  Serious: Yes (Death)
  Sender: FDA-Public Use
  Company Number: US-ROCHE-700950

PATIENT
  Sex: Female

DRUGS (2)
  1. CAPECITABINE [Suspect]
     Dosage: FINAL DOSE OF CAPECITABINE WAS ON 13 NOVEMBER 2009
     Route: 065
  2. FULVESTRANT [Concomitant]
     Route: 030

REACTIONS (1)
  - MALIGNANT NEOPLASM PROGRESSION [None]
